FAERS Safety Report 6081381-2 (Version None)
Quarter: 2009Q1

REPORT INFORMATION
  Report Type: 
  Country: None (occurrence: None)
  Receive Date: 20090218
  Receipt Date: 20090209
  Transmission Date: 20090719
  Serious: Yes (Death)
  Sender: FDA-Public Use
  Company Number: AU-CELGENEUS-008-21880-08111197

PATIENT
  Sex: Female

DRUGS (2)
  1. REVLIMID [Suspect]
     Indication: MULTIPLE MYELOMA
     Route: 048
     Dates: start: 20080703
  2. REVLIMID [Suspect]
     Route: 048
     Dates: start: 20080813

REACTIONS (2)
  - BLOOD COUNT ABNORMAL [None]
  - MULTIPLE MYELOMA [None]
